FAERS Safety Report 8520858-4 (Version None)
Quarter: 2012Q3

REPORT INFORMATION
  Report Type: 
  Country: None (occurrence: None)
  Receive Date: 20120719
  Receipt Date: 20120711
  Transmission Date: 20120928
  Serious: Yes (Hospitalization, Other)
  Sender: FDA-Public Use
  Company Number: GB-JNJFOC-20110203341

PATIENT
  Sex: Female
  Weight: 66.1 kg

DRUGS (4)
  1. INFLIXIMAB, RECOMBINANT [Suspect]
     Indication: CROHN'S DISEASE
     Dosage: HAD 3 INFUSIONS
     Route: 042
     Dates: start: 20101001, end: 20110202
  2. INFLIXIMAB, RECOMBINANT [Suspect]
     Indication: SPONDYLOARTHROPATHY
     Dosage: HAD 3 INFUSIONS
     Route: 042
     Dates: start: 20101001, end: 20110202
  3. CALCIUM WITH VITAMIN D [Concomitant]
     Indication: OSTEOPENIA
     Route: 048
  4. ACETAMINOPHEN AND CODEINE PHOSPHATE [Concomitant]
     Indication: BACK PAIN
     Dosage: DOSE REPORTED AS 1-2 TABS
     Route: 048

REACTIONS (4)
  - PLACENTA PRAEVIA [None]
  - POSTPARTUM HAEMORRHAGE [None]
  - CAESAREAN SECTION [None]
  - MATERNAL EXPOSURE DURING PREGNANCY [None]
